FAERS Safety Report 5482679-9 (Version None)
Quarter: 2007Q4

REPORT INFORMATION
  Report Type: 
  Country: None (occurrence: None)
  Receive Date: 20071011
  Receipt Date: 20070929
  Transmission Date: 20080405
  Serious: Yes (Other)
  Sender: FDA-Public Use
  Company Number: IT-ELI_LILLY_AND_COMPANY-IT200710000332

PATIENT
  Age: 81 Year
  Sex: Female

DRUGS (8)
  1. FORTEO [Suspect]
     Indication: OSTEOPOROSIS
     Dosage: UNK, DAILY (1/D)
     Route: 058
     Dates: start: 20070924, end: 20070928
  2. PLAVIX [Concomitant]
     Dosage: UNK, DAILY (1/D)
     Route: 048
  3. CATAPRESAN                              /GFR/ [Concomitant]
     Dosage: UNK, UNKNOWN
     Route: 062
  4. NIMOTOP [Concomitant]
     Dosage: 10 UNK, 3/D
     Route: 048
  5. LOSAPREX [Concomitant]
  6. RANITIDINE HCL [Concomitant]
  7. VITAMIN D [Concomitant]
  8. LIBRADIN [Concomitant]
     Indication: BLOOD PRESSURE INCREASED

REACTIONS (1)
  - BONE PAIN [None]
